FAERS Safety Report 8647789 (Version 2)
Quarter: 2013Q2

REPORT INFORMATION
  Report Type: Report from Study
  Country: DE (occurrence: DE)
  Receive Date: 20120703
  Receipt Date: 20130615
  Transmission Date: 20140414
  Serious: Yes (Hospitalization)
  Sender: FDA-Public Use
  Company Number: DE-ROCHE-1082890

PATIENT
  Age: 71 Year
  Sex: Female
  Weight: 80 kg

DRUGS (4)
  1. CAPECITABINE [Suspect]
     Indication: BREAST CANCER
     Dosage: DATE OF LAST DOSE PRIOR TO SAE: 26/JUN/2012
     Route: 048
     Dates: start: 20120516
  2. NAB-PACLITAXEL [Suspect]
     Indication: BREAST CANCER
     Dosage: DATE OF LAST DOSE PRIOR TO SAE: 20/JUN/2012
     Route: 042
     Dates: start: 20120516
  3. BISOPROLOL PLUS [Concomitant]
     Dosage: 5 MG/12.5
     Route: 065
  4. L-THYROXIN [Concomitant]
     Dosage: 125 (UNITS NOT PROVIDED)
     Route: 065

REACTIONS (1)
  - Mucosal inflammation [Recovered/Resolved]
